FAERS Safety Report 22306120 (Version 1)
Quarter: 2023Q2

REPORT INFORMATION
  Report Type: Spontaneous
  Country: GB (occurrence: GB)
  Receive Date: 20230511
  Receipt Date: 20230511
  Transmission Date: 20230722
  Serious: Yes (Other)
  Sender: FDA-Public Use
  Company Number: GB-AMGEN-GBRSP2023078140

PATIENT
  Sex: Female

DRUGS (3)
  1. TRASTUZUMAB [Suspect]
     Active Substance: TRASTUZUMAB
     Indication: Breast cancer metastatic
     Dosage: UNK
     Route: 065
  2. PEMBROLIZUMAB [Concomitant]
     Active Substance: PEMBROLIZUMAB
     Indication: Metastatic malignant melanoma
     Dosage: UNK
  3. VINORELBINE [Concomitant]
     Active Substance: VINORELBINE TARTRATE
     Indication: Breast cancer metastatic
     Dosage: UNK

REACTIONS (7)
  - Venous haemorrhage [Recovered/Resolved]
  - Liver carcinoma ruptured [Recovered/Resolved]
  - Subcapsular hepatic haematoma [Recovered/Resolved]
  - Breast cancer metastatic [Unknown]
  - Haemoperitoneum [Recovered/Resolved]
  - Metastatic malignant melanoma [Unknown]
  - Pneumonia [Recovered/Resolved]
